FAERS Safety Report 9731572 (Version 1)
Quarter: 2013Q4

REPORT INFORMATION
  Report Type: Spontaneous
  Country: GB (occurrence: GB)
  Receive Date: 20131205
  Receipt Date: 20131205
  Transmission Date: 20140711
  Serious: Yes (Life-Threatening, Other)
  Sender: FDA-Public Use
  Company Number: GB-009507513-1312GBR001612

PATIENT
  Age: 73 Year
  Sex: Male
  Weight: 69 kg

DRUGS (7)
  1. SITAGLIPTIN PHOSPHATE [Suspect]
     Dosage: 100 MG, UNK
     Route: 048
     Dates: start: 20120914, end: 201310
  2. ASPIRIN [Concomitant]
     Dosage: 75 MG, QD
  3. BENDROFLUMETHIAZIDE [Concomitant]
     Indication: HYPERTENSION
     Dosage: 2.5 MG, QD
     Route: 048
     Dates: start: 1999
  4. GLIMEPIRIDE [Concomitant]
     Dosage: 1 MG, QD
     Route: 048
     Dates: start: 2011
  5. LERCANIDIPINE [Concomitant]
     Indication: HYPERTENSION
     Dosage: 20 MG, UNK
     Route: 048
     Dates: start: 1998
  6. METFORMIN [Concomitant]
     Dosage: 1 MG, BID
     Route: 048
     Dates: start: 2004
  7. ZESTRIL [Concomitant]
     Indication: HYPERTENSION
     Dosage: 20 MG, BID
     Route: 048
     Dates: start: 2002

REACTIONS (1)
  - Pancreatic carcinoma [Not Recovered/Not Resolved]
